FAERS Safety Report 20533967 (Version 1)
Quarter: 2022Q1

REPORT INFORMATION
  Report Type: Spontaneous
  Country: CA (occurrence: CA)
  Receive Date: 20220301
  Receipt Date: 20220301
  Transmission Date: 20220423
  Serious: Yes (Other)
  Sender: FDA-Public Use
  Company Number: CA-JNJFOC-20220257816

PATIENT
  Age: 38 Year
  Sex: Female
  Weight: 91 kg

DRUGS (4)
  1. REMICADE [Suspect]
     Active Substance: INFLIXIMAB
     Indication: Colitis ulcerative
     Route: 042
  2. ATARAX [Concomitant]
     Active Substance: HYDROXYZINE HYDROCHLORIDE
  3. BUPRENORPHINE [Concomitant]
     Active Substance: BUPRENORPHINE
  4. SENOKOT [Concomitant]
     Active Substance: SENNOSIDES
     Route: 065

REACTIONS (15)
  - Fibromyalgia [Recovered/Resolved]
  - Oropharyngeal pain [Recovered/Resolved]
  - Migraine [Recovered/Resolved]
  - Weight decreased [Recovered/Resolved]
  - Illness [Recovered/Resolved]
  - Nasopharyngitis [Recovered/Resolved]
  - Chills [Recovered/Resolved]
  - Abdominal discomfort [Recovered/Resolved]
  - Diarrhoea [Recovered/Resolved]
  - Headache [Recovered/Resolved]
  - Nausea [Recovered/Resolved]
  - Abdominal pain upper [Recovered/Resolved]
  - Intentional product use issue [Recovered/Resolved]
  - Inappropriate schedule of product administration [Recovered/Resolved]
  - Off label use [Recovered/Resolved]
